FAERS Safety Report 5166695-2 (Version None)
Quarter: 2006Q4

REPORT INFORMATION
  Report Type: 
  Country: None (occurrence: None)
  Receive Date: 20061204
  Receipt Date: 20061204
  Transmission Date: 20070319
  Serious: Yes (Other)
  Sender: FDA-Public Use
  Company Number: None

PATIENT
  Age: 72 Year
  Sex: Male

DRUGS (5)
  1. ALBUTEROL [Suspect]
     Dosage: 4 PUFFS  4X A DAY
     Dates: start: 20061122, end: 20061201
  2. ALBUTEROL [Suspect]
  3. LOTREL [Concomitant]
  4. ALPRAZOLAM [Concomitant]
  5. GABAPENTIN [Concomitant]

REACTIONS (3)
  - ASTHMA [None]
  - DRUG INEFFECTIVE [None]
  - PHARMACEUTICAL PRODUCT COMPLAINT [None]
